FAERS Safety Report 8150627-9 (Version None)
Quarter: 2012Q1

REPORT INFORMATION
  Report Type: 
  Country: None (occurrence: None)
  Receive Date: 20120220
  Receipt Date: 20120213
  Transmission Date: 20120608
  Serious: Yes (Other)
  Sender: FDA-Public Use
  Company Number: PHHY2012AU013434

PATIENT
  Sex: Female

DRUGS (1)
  1. ZOLEDRONOC ACID [Suspect]
     Indication: OSTEOPOROSIS
     Dosage: 5 MG, YEARLY
     Route: 042
     Dates: start: 20120206

REACTIONS (6)
  - PRURITUS [None]
  - DIARRHOEA [None]
  - HEADACHE [None]
  - CHEST PAIN [None]
  - BACK PAIN [None]
  - VOMITING [None]
